FAERS Safety Report 21867386 (Version 6)
Quarter: 2023Q4

REPORT INFORMATION
  Report Type: Report from Study
  Country: GB (occurrence: GB)
  Receive Date: 20230116
  Receipt Date: 20231108
  Transmission Date: 20240110
  Serious: Yes (Hospitalization)
  Sender: FDA-Public Use
  Company Number: GB-ROCHE-3066874

PATIENT
  Age: 67 Year
  Sex: Male
  Weight: 94.8 kg

DRUGS (17)
  1. BEVACIZUMAB [Suspect]
     Active Substance: BEVACIZUMAB
     Indication: Hepatocellular carcinoma
     Dosage: 1400 MILLIGRAM
     Route: 042
     Dates: start: 20220118
  2. ATEZOLIZUMAB [Suspect]
     Active Substance: ATEZOLIZUMAB
     Indication: Hepatocellular carcinoma
     Dosage: 1200 MILLIGRAM, Q3WK, START DATE OF MOST RECENT DOSE OF STUDY DRUG PRIOR TO SAE/AE: 06/DEC/2022
     Route: 041
     Dates: start: 20220118, end: 20221206
  3. CALCIUM CARBONATE [Concomitant]
     Active Substance: CALCIUM CARBONATE
     Dosage: 1.5 GRAM, BID
     Route: 065
     Dates: start: 20221224
  4. CARVEDILOL [Concomitant]
     Active Substance: CARVEDILOL
     Dosage: UNK UNK, QD
     Route: 065
     Dates: start: 20211217
  5. CHOLECALCIFEROL [Concomitant]
     Active Substance: CHOLECALCIFEROL
     Dosage: UNK, BID
     Route: 065
     Dates: start: 20210730
  6. EDOXABAN [Concomitant]
     Active Substance: EDOXABAN
     Dosage: UNK UNK, QD
     Route: 065
  7. EDOXABAN [Concomitant]
     Active Substance: EDOXABAN
  8. RAMIPRIL [Concomitant]
     Active Substance: RAMIPRIL
     Dosage: UNK UNK, QD
     Route: 065
  9. RAMIPRIL [Concomitant]
     Active Substance: RAMIPRIL
  10. CIPROFLOXACIN [Concomitant]
     Active Substance: CIPROFLOXACIN
     Dosage: UNK UNK, BID
     Dates: start: 20221224, end: 20221229
  11. PANTOPRAZOLE [Concomitant]
     Active Substance: PANTOPRAZOLE
     Dosage: UNK UNK, BID
     Dates: start: 20221224, end: 20221225
  12. LOPERAMIDE [Concomitant]
     Active Substance: LOPERAMIDE
     Dosage: UNK, AS NECESSARY
     Route: 065
     Dates: start: 20230317
  13. SORAFENIB [Concomitant]
     Active Substance: SORAFENIB
     Dosage: UNK
     Dates: start: 20230303
  14. SORAFENIB [Concomitant]
     Active Substance: SORAFENIB
  15. CALCIUM CARBONATE\CHOLECALCIFEROL [Concomitant]
     Active Substance: CALCIUM CARBONATE\CHOLECALCIFEROL
     Dosage: UNK UNK, BID
     Route: 065
     Dates: start: 20221224
  16. SPIRONOLACTONE [Concomitant]
     Active Substance: SPIRONOLACTONE
     Dosage: UNK UNK, QD
     Dates: start: 20230707
  17. REGORAFENIB [Concomitant]
     Active Substance: REGORAFENIB
     Dosage: UNK
     Dates: start: 20230915

REACTIONS (11)
  - Oesophageal varices haemorrhage [Recovered/Resolved]
  - Diarrhoea [Not Recovered/Not Resolved]
  - Abdominal pain [Not Recovered/Not Resolved]
  - Fatigue [Recovered/Resolved]
  - Fatigue [Recovered/Resolved]
  - Diarrhoea [Recovered/Resolved]
  - Epistaxis [Recovered/Resolved]
  - Arthralgia [Recovered/Resolved]
  - Hypertension [Recovered/Resolved]
  - Neck pain [Recovered/Resolved]
  - Constipation [Recovered/Resolved]

NARRATIVE: CASE EVENT DATE: 20220204
